FAERS Safety Report 15515798 (Version 2)
Quarter: 2018Q4

REPORT INFORMATION
  Report Type: Spontaneous
  Country: US (occurrence: US)
  Receive Date: 20181017
  Receipt Date: 20181026
  Transmission Date: 20190205
  Serious: Yes (Other)
  Sender: FDA-Public Use
  Company Number: US-AUROBINDO-AUR-APL-2018-049722

PATIENT
  Age: 16 Year
  Sex: Male

DRUGS (1)
  1. DIVALPROEX [Suspect]
     Active Substance: DIVALPROEX SODIUM
     Indication: EPILEPSY
     Dosage: UNK
     Route: 065

REACTIONS (8)
  - Erythema [Recovering/Resolving]
  - Dermatitis psoriasiform [Recovering/Resolving]
  - Eczema [Recovering/Resolving]
  - Pityriasis [Recovering/Resolving]
  - Pruritus [Recovering/Resolving]
  - Parakeratosis [Recovering/Resolving]
  - Skin exfoliation [Recovering/Resolving]
  - Hyperkeratosis [Recovering/Resolving]
